FAERS Safety Report 5516851-6 (Version None)
Quarter: 2007Q4

REPORT INFORMATION
  Report Type: 
  Country: None (occurrence: None)
  Receive Date: 20071109
  Receipt Date: 20071102
  Transmission Date: 20080405
  Serious: Yes (Life-Threatening)
  Sender: FDA-Public Use
  Company Number: 200711AGG00746

PATIENT
  Sex: Male

DRUGS (4)
  1. AGGRASTAT [Suspect]
     Indication: CARDIAC INFECTION
     Dosage: 25 MCG/KG TOTAL INTRAVENOUS BOLUS, (INTRAVENOUS DRIP)
     Route: 041
     Dates: start: 20071031, end: 20071031
  2. AGGRASTAT [Suspect]
     Indication: CARDIAC INFECTION
     Dosage: 25 MCG/KG TOTAL INTRAVENOUS BOLUS, (INTRAVENOUS DRIP)
     Route: 041
     Dates: start: 20071031, end: 20071101
  3. CLOPIDOGREL BISULFATE [Concomitant]
  4. ENOXAPARIN SODIUM [Concomitant]

REACTIONS (4)
  - ACUTE MYOCARDIAL INFARCTION [None]
  - CARDIOGENIC SHOCK [None]
  - MITRAL VALVE DISEASE [None]
  - MITRAL VALVE INCOMPETENCE [None]
